FAERS Safety Report 12744229 (Version 1)
Quarter: 2016Q3

REPORT INFORMATION
  Report Type: Report from Study
  Country: US (occurrence: US)
  Receive Date: 20160914
  Receipt Date: 20160914
  Transmission Date: 20161109
  Serious: Yes (Hospitalization)
  Sender: FDA-Public Use
  Company Number: US-BAUSCH-BL-2016-022026

PATIENT
  Age: 5 Year
  Sex: Male

DRUGS (3)
  1. XENAZINE [Suspect]
     Active Substance: TETRABENAZINE
     Indication: LEUKODYSTROPHY
     Route: 065
     Dates: start: 201501
  2. TETRABENAZINE. [Suspect]
     Active Substance: TETRABENAZINE
     Indication: LEUKODYSTROPHY
     Route: 048
     Dates: start: 201501, end: 2016
  3. TETRABENAZINE. [Suspect]
     Active Substance: TETRABENAZINE
     Route: 048
     Dates: start: 201604

REACTIONS (2)
  - Off label use [Not Recovered/Not Resolved]
  - Hospitalisation [Unknown]

NARRATIVE: CASE EVENT DATE: 201501
